FAERS Safety Report 6379288-6 (Version None)
Quarter: 2009Q3

REPORT INFORMATION
  Report Type: 
  Country: None (occurrence: None)
  Receive Date: 20090923
  Receipt Date: 20090923
  Transmission Date: 20100115
  Serious: Yes (Life-Threatening)
  Sender: FDA-Public Use
  Company Number: None

PATIENT
  Age: 68 Year
  Sex: Female
  Weight: 115 kg

DRUGS (14)
  1. HEPARIN [Suspect]
     Indication: THROMBOSIS PROPHYLAXIS
     Dosage: VAR. IV INF
     Route: 042
     Dates: start: 20081028, end: 20081104
  2. ASPIRIN [Concomitant]
  3. ATORVASTATIN [Concomitant]
  4. CLOPIDOGREL [Concomitant]
  5. DIGOXIN [Concomitant]
  6. FLUOXETINE [Concomitant]
  7. GABAPENTIN [Concomitant]
  8. METRONIDAZOLE [Concomitant]
  9. PANTOPRAZOLE SODIUM [Concomitant]
  10. AMIODARONE [Concomitant]
  11. DOPAMINE HCL [Concomitant]
  12. EPTIFIBATIDE [Concomitant]
  13. FUROSEMIDE [Concomitant]
  14. VASOPRESSIN [Concomitant]

REACTIONS (3)
  - CARDIAC ARREST [None]
  - CARDIOGENIC SHOCK [None]
  - HEPARIN-INDUCED THROMBOCYTOPENIA [None]
